FAERS Safety Report 21743192 (Version 1)
Quarter: 2022Q4

REPORT INFORMATION
  Report Type: Spontaneous
  Country: US (occurrence: US)
  Receive Date: 20221217
  Receipt Date: 20221217
  Transmission Date: 20230112
  Serious: No
  Sender: FDA-Public Use
  Company Number: US-ORGANON-O2212USA000879

PATIENT
  Age: 18 Year
  Sex: Female

DRUGS (3)
  1. ZOCOR [Suspect]
     Active Substance: SIMVASTATIN
     Indication: Focal segmental glomerulosclerosis
  2. EPLERENONE [Concomitant]
     Active Substance: EPLERENONE
     Indication: Focal segmental glomerulosclerosis
  3. LISINOPRIL [Concomitant]
     Active Substance: LISINOPRIL
     Indication: Focal segmental glomerulosclerosis

REACTIONS (1)
  - Product use in unapproved indication [Unknown]
